FAERS Safety Report 7551450-6 (Version None)
Quarter: 2011Q2

REPORT INFORMATION
  Report Type: 
  Country: None (occurrence: None)
  Receive Date: 20110616
  Receipt Date: 20110601
  Transmission Date: 20111010
  Serious: Yes (Death, Hospitalization, Other)
  Sender: FDA-Public Use
  Company Number: PHEH2008US04830

PATIENT
  Sex: Male
  Weight: 104.31 kg

DRUGS (38)
  1. AREDIA [Suspect]
     Indication: MULTIPLE MYELOMA
     Dosage: 90 MG, UNK
  2. ZOMETA [Suspect]
     Indication: MULTIPLE MYELOMA
     Dosage: 4 MG, QMO
  3. CHEMOTHERAPEUTICS NOS [Concomitant]
  4. RADIATION TREATMENT [Concomitant]
  5. DEXAMETHASONE [Concomitant]
     Dosage: 2 MG, QD
     Route: 048
     Dates: start: 20020101
  6. HUMULIN R [Concomitant]
  7. TYLENOL-500 [Concomitant]
     Dosage: 650 MG, UNK
  8. LIDEX [Concomitant]
  9. DARVOCET-N 50 [Concomitant]
  10. PRAVACHOL [Concomitant]
     Dosage: 40 MG, PRN
     Route: 048
     Dates: start: 20040101
  11. NEURONTIN [Concomitant]
  12. VALTREX [Concomitant]
  13. COUMADIN [Concomitant]
  14. SENOKOT [Concomitant]
  15. PROTONIX [Concomitant]
  16. AUGMENTIN '125' [Concomitant]
     Dosage: 375 MG, QD
     Route: 048
  17. DILTIAZEM [Concomitant]
     Dosage: 180 MG, QD
     Route: 048
     Dates: start: 20020101
  18. MULTI-VITAMINS [Concomitant]
  19. DIFLUCAN [Concomitant]
  20. LASIX [Concomitant]
  21. FOLIC ACID [Concomitant]
  22. VICODIN [Concomitant]
     Dosage: 75 MG, QD
     Route: 048
     Dates: start: 20040101
  23. THALIDOMIDE [Concomitant]
  24. DECADRON [Concomitant]
  25. AMARYL [Concomitant]
     Dosage: 2 MG, QD
     Route: 048
     Dates: start: 20040101
  26. CARDIZEM [Concomitant]
  27. PREDNISONE [Concomitant]
  28. AUGMENTIN '125' [Concomitant]
  29. COUMADIN [Concomitant]
     Dosage: 375 MG, QD
  30. BENADRYL [Concomitant]
     Dosage: 25 MG, UNK
  31. KLOR-CON [Concomitant]
     Dosage: 10 MEQ, QD
     Route: 048
     Dates: start: 20040101
  32. PROCRIT [Concomitant]
  33. PROGRAF [Concomitant]
  34. AMOXIL [Concomitant]
     Dosage: 875 MG, BID
     Dates: start: 20040910
  35. PERIDEX [Concomitant]
  36. DIGOXIN [Concomitant]
     Dosage: 250 UG, QD
     Route: 048
     Dates: start: 20030101
  37. NEUTRA-PHOS [Concomitant]
  38. FENTANYL-100 [Concomitant]

REACTIONS (80)
  - BONE DISORDER [None]
  - ARRHYTHMIA [None]
  - NEUROPATHY PERIPHERAL [None]
  - BONE MARROW DISORDER [None]
  - TACHYCARDIA [None]
  - HERPES ZOSTER [None]
  - OSTEOMYELITIS ACUTE [None]
  - METASTASES TO SPINE [None]
  - ANAEMIA [None]
  - BALANCE DISORDER [None]
  - LEFT ATRIAL DILATATION [None]
  - WEIGHT DECREASED [None]
  - CELLULITIS [None]
  - BLOOD URINE PRESENT [None]
  - MOUTH ULCERATION [None]
  - RIB DEFORMITY [None]
  - OSTEITIS DEFORMANS [None]
  - OSTEOARTHRITIS [None]
  - GENITAL CANDIDIASIS [None]
  - FALL [None]
  - OEDEMA PERIPHERAL [None]
  - NEUTROPENIA [None]
  - LEFT VENTRICULAR HYPERTROPHY [None]
  - PAIN [None]
  - ANXIETY [None]
  - ANHEDONIA [None]
  - DEFORMITY [None]
  - IMPAIRED HEALING [None]
  - MOUTH HAEMORRHAGE [None]
  - OSTEOMYELITIS CHRONIC [None]
  - INTERVERTEBRAL DISC DEGENERATION [None]
  - MASS [None]
  - SPINAL OSTEOARTHRITIS [None]
  - SPINAL COMPRESSION FRACTURE [None]
  - DEEP VEIN THROMBOSIS [None]
  - OSTEONECROSIS OF JAW [None]
  - DYSPHAGIA [None]
  - GINGIVITIS [None]
  - MYELOPATHY [None]
  - ATRIAL FIBRILLATION [None]
  - CERVICAL SPINAL STENOSIS [None]
  - SCROTAL INFECTION [None]
  - HUMERUS FRACTURE [None]
  - PAIN IN EXTREMITY [None]
  - VISION BLURRED [None]
  - BLOOD GLUCOSE INCREASED [None]
  - BLOOD OSMOLARITY DECREASED [None]
  - FACE OEDEMA [None]
  - MULTIPLE MYELOMA [None]
  - DISABILITY [None]
  - ORAL MUCOSAL EXFOLIATION [None]
  - POSTOPERATIVE WOUND INFECTION [None]
  - ARTHRALGIA [None]
  - BACK PAIN [None]
  - INJURY [None]
  - EMOTIONAL DISTRESS [None]
  - SKIN EXFOLIATION [None]
  - GINGIVAL INFECTION [None]
  - GRAFT VERSUS HOST DISEASE [None]
  - HEPATITIS [None]
  - DEAFNESS NEUROSENSORY [None]
  - AGRANULOCYTOSIS [None]
  - SPINAL CORD COMPRESSION [None]
  - PYREXIA [None]
  - EPIDIDYMAL CYST [None]
  - BONE LESION [None]
  - AMNESIA [None]
  - HYPOAESTHESIA [None]
  - MUSCULAR WEAKNESS [None]
  - MUSCULOSKELETAL DISCOMFORT [None]
  - HYPONATRAEMIA [None]
  - ERYTHEMA [None]
  - SCROTAL ABSCESS [None]
  - AORTIC VALVE INCOMPETENCE [None]
  - BRAIN MASS [None]
  - GAIT DISTURBANCE [None]
  - BALANOPOSTHITIS [None]
  - WALKING AID USER [None]
  - MUSCULOSKELETAL STIFFNESS [None]
  - MYOPATHY [None]
